FAERS Safety Report 23881207 (Version 1)
Quarter: 2024Q2

REPORT INFORMATION
  Report Type: Spontaneous
  Country: AU (occurrence: AU)
  Receive Date: 20240521
  Receipt Date: 20240521
  Transmission Date: 20240716
  Serious: Yes (Life-Threatening, Hospitalization)
  Sender: FDA-Public Use
  Company Number: AU-SUN PHARMACEUTICAL INDUSTRIES LTD-2024R1-446767

PATIENT
  Age: 76 Year
  Sex: Male
  Weight: 59.6 kg

DRUGS (3)
  1. GEMCITABINE [Suspect]
     Active Substance: GEMCITABINE
     Indication: Chemotherapy
     Dosage: 1305 MILLIGRAM, DAY 1, 8 AND 15 OF 28 DAY CYCLE
     Route: 042
     Dates: start: 20231215, end: 20231229
  2. ABRAXANE [Suspect]
     Active Substance: PACLITAXEL
     Indication: Neoplasm
     Dosage: 163.13 MILLIGRAM, DAY 1, 8 AND 15 OF 28 DAY CYCLE
     Route: 042
     Dates: start: 20231229
  3. TORIPALIMAB [Suspect]
     Active Substance: TORIPALIMAB
     Indication: Neoplasm
     Dosage: 240 MILLIGRAM, Q2W
     Route: 042
     Dates: start: 20231122, end: 20240119

REACTIONS (2)
  - Pityriasis rubra pilaris [Recovering/Resolving]
  - Drug eruption [Unknown]

NARRATIVE: CASE EVENT DATE: 20240127
